FAERS Safety Report 8697313 (Version 2)
Quarter: 2014Q3

REPORT INFORMATION
  Report Type: Spontaneous
  Country: US (occurrence: US)
  Receive Date: 20120801
  Receipt Date: 20140728
  Transmission Date: 20150326
  Serious: Yes (Death)
  Sender: FDA-Public Use
  Company Number: US-GLAXOSMITHKLINE-A0987792A

PATIENT
  Sex: Male

DRUGS (1)
  1. AVANDIA [Suspect]
     Active Substance: ROSIGLITAZONE MALEATE
     Indication: DIABETES MELLITUS
     Dosage: 8MG PER DAY
     Route: 048
     Dates: start: 200103, end: 200107

REACTIONS (4)
  - Osteomyelitis [Fatal]
  - Acute respiratory failure [Fatal]
  - Sepsis [Fatal]
  - Cardiac failure congestive [Unknown]
